FAERS Safety Report 4558578-3 (Version None)
Quarter: 2005Q1

REPORT INFORMATION
  Report Type: 
  Country: None (occurrence: None)
  Receive Date: 20050119
  Receipt Date: 20050106
  Transmission Date: 20050727
  Serious: Yes (Hospitalization)
  Sender: FDA-Public Use
  Company Number: 02100-JPN-04-0336

PATIENT
  Age: 73 Year
  Sex: Male

DRUGS (3)
  1. CILOSTAZOL [Suspect]
     Indication: ATHEROSCLEROSIS OBLITERANS
     Dosage: 200 MG ORAL
     Route: 048
     Dates: start: 20041126, end: 20041202
  2. TICLOPIDINE HCL [Suspect]
     Dosage: 200 MG ORAL
     Route: 048
     Dates: start: 20041015, end: 20041126
  3. LITHIUM CARBONATE [Suspect]
     Dosage: 400 MG ORAL
     Route: 048
     Dates: end: 20041129

REACTIONS (5)
  - ARTERITIS OBLITERANS [None]
  - DIALYSIS [None]
  - HEPATIC FUNCTION ABNORMAL [None]
  - RENAL FAILURE ACUTE [None]
  - STENT PLACEMENT [None]
